FAERS Safety Report 22831371 (Version 2)
Quarter: 2023Q4

REPORT INFORMATION
  Report Type: Report from Study
  Country: EG (occurrence: EG)
  Receive Date: 20230817
  Receipt Date: 20231108
  Transmission Date: 20240110
  Serious: Yes (Life-Threatening, Hospitalization, Other)
  Sender: FDA-Public Use
  Company Number: EG-002147023-NVSC2023EG178579

PATIENT
  Sex: Female

DRUGS (5)
  1. GILENYA [Suspect]
     Active Substance: FINGOLIMOD HYDROCHLORIDE
     Indication: Multiple sclerosis
     Dosage: 0.5 MG, QD (ONE CAPSULE ONCE DAILY)
     Route: 048
     Dates: start: 20230321, end: 20230610
  2. DEXAMETHASONE [Suspect]
     Active Substance: DEXAMETHASONE
     Indication: Multiple sclerosis
     Dosage: 1 DOSAGE FORM, ONCE/SINGLE, (ONE INJECTION ONLY ONE TIME IN THIS DAY)
     Route: 042
     Dates: start: 20230813, end: 20230813
  3. BIOTIN [Concomitant]
     Active Substance: BIOTIN
     Indication: Vitamin D abnormal
     Dosage: 1 DOSAGE FORM, QD (STRENGTH: 100.000)
     Route: 048
     Dates: start: 20230625
  4. PANTOPRAZOLE SODIUM [Concomitant]
     Active Substance: PANTOPRAZOLE SODIUM
     Indication: Abdominal pain upper
     Dosage: UNK
     Route: 065
  5. OMEGA 3 [Concomitant]
     Active Substance: CAPSAICIN
     Indication: Prophylaxis
     Dosage: 1 DOSAGE FORM, QD, AFTER LUNCH (THE PATIENT STATED SHE WAS NOT COMPLIANT TO OMEGA-3)
     Route: 048
     Dates: start: 2022

REACTIONS (13)
  - Heart rate increased [Recovering/Resolving]
  - Feeling abnormal [Recovering/Resolving]
  - Hypertension [Recovering/Resolving]
  - Angina pectoris [Recovering/Resolving]
  - Headache [Recovering/Resolving]
  - Neck pain [Not Recovered/Not Resolved]
  - Eye pain [Not Recovered/Not Resolved]
  - Dyspepsia [Recovering/Resolving]
  - Fatigue [Unknown]
  - Hepatic enzyme increased [Unknown]
  - Nasopharyngitis [Unknown]
  - Hypoaesthesia [Recovered/Resolved]
  - Product dispensing issue [Unknown]

NARRATIVE: CASE EVENT DATE: 20230101
